FAERS Safety Report 21483438 (Version 1)
Quarter: 2022Q4

REPORT INFORMATION
  Report Type: Spontaneous
  Country: US (occurrence: US)
  Receive Date: 20221020
  Receipt Date: 20221020
  Transmission Date: 20230113
  Serious: No
  Sender: FDA-Public Use
  Company Number: US-CELLTRION INC.-2022US003407

PATIENT

DRUGS (1)
  1. INFLECTRA [Suspect]
     Active Substance: INFLIXIMAB-DYYB
     Indication: Vogt-Koyanagi-Harada disease
     Dosage: 400 MG Q 8 WEEKS QUANTITY 4 VIALS
     Route: 065

REACTIONS (1)
  - Off label use [Unknown]
